FAERS Safety Report 5195431-9 (Version None)
Quarter: 2006Q4

REPORT INFORMATION
  Report Type: 
  Country: None (occurrence: None)
  Receive Date: 20061230
  Receipt Date: 20060405
  Transmission Date: 20070319
  Serious: Yes (Other)
  Sender: FDA-Public Use
  Company Number: US-NOVOPROD-252273

PATIENT
  Sex: Female
  Weight: 86.168 kg

DRUGS (5)
  1. ACTIVELLA [Suspect]
     Indication: MENOPAUSAL SYMPTOMS
     Dosage: 1 MG/0.5 MG QD
     Dates: start: 20010101, end: 20030101
  2. MEDROXYPROGESTERONE [Suspect]
     Indication: MENOPAUSAL SYMPTOMS
     Dosage: 10 MG, QD
     Dates: start: 20010101
  3. EFFEXOR [Concomitant]
     Indication: DEPRESSION
     Dosage: 150 MG, UNK
     Dates: start: 20030801
  4. EFFEXOR [Concomitant]
     Indication: MENOPAUSAL SYMPTOMS
  5. LEVOTHYROXINE                      /00068002/ [Concomitant]
     Indication: THYROID DISORDER
     Dosage: 88 UG, UNK
     Dates: start: 20030101

REACTIONS (7)
  - ARTHRITIS [None]
  - BREAST CANCER [None]
  - BREAST CANCER IN SITU [None]
  - DEPRESSION [None]
  - OESTROGEN RECEPTOR ASSAY POSITIVE [None]
  - PROGESTERONE RECEPTOR ASSAY POSITIVE [None]
  - THYROID DISORDER [None]
